FAERS Safety Report 5856577-2 (Version None)
Quarter: 2008Q3

REPORT INFORMATION
  Report Type: 
  Country: None (occurrence: None)
  Receive Date: 20080825
  Receipt Date: 20080818
  Transmission Date: 20090109
  Serious: Yes (Other)
  Sender: FDA-Public Use
  Company Number: US-MERCK-0803USA00145

PATIENT
  Age: 77 Year
  Sex: Male
  Weight: 62 kg

DRUGS (4)
  1. ZETIA [Suspect]
     Route: 048
     Dates: start: 20060701
  2. LIPITOR [Suspect]
     Route: 048
  3. CRESTOR [Suspect]
     Route: 065
  4. NIACIN [Suspect]
     Route: 065

REACTIONS (5)
  - DRUG INEFFECTIVE [None]
  - DRUG INTOLERANCE [None]
  - EMPHYSEMA [None]
  - MYALGIA [None]
  - WEIGHT DECREASED [None]
